FAERS Safety Report 9823471 (Version 2)
Quarter: 2014Q1

REPORT INFORMATION
  Report Type: Spontaneous
  Country: US (occurrence: US)
  Receive Date: 20140116
  Receipt Date: 20140116
  Transmission Date: 20141002
  Serious: No
  Sender: FDA-Public Use
  Company Number: US-GILEAD-2011-0035277

PATIENT
  Age: 65 Year
  Sex: Female

DRUGS (4)
  1. LETAIRIS [Suspect]
     Indication: PULMONARY HYPERTENSION
     Route: 048
     Dates: start: 20100915
  2. LASIX [Concomitant]
  3. TYVASO [Concomitant]
  4. ADCIRCA [Concomitant]

REACTIONS (3)
  - Palpitations [Unknown]
  - Nasopharyngitis [Unknown]
  - Palpitations [Unknown]
